FAERS Safety Report 9792801 (Version 3)
Quarter: 2014Q1

REPORT INFORMATION
  Report Type: Spontaneous
  Country: SZ (occurrence: None)
  Receive Date: 20131230
  Receipt Date: 20140224
  Transmission Date: 20141002
  Serious: Yes (Hospitalization)
  Sender: FDA-Public Use
  Company Number: 20130750

PATIENT
  Age: 78 Year
  Sex: Male

DRUGS (1)
  1. FERINJECT (FERRIC CARBOXYMALTOSE - VIFOR) [Suspect]
     Indication: PREOPERATIVE CARE
     Dosage: 1000 MG 1 IN 1 TOTAL
     Dates: start: 20131018, end: 20131018

REACTIONS (13)
  - Decreased appetite [None]
  - Vertigo [None]
  - Paraesthesia [None]
  - Paraesthesia [None]
  - Pain [None]
  - Neck pain [None]
  - Headache [None]
  - Fatigue [None]
  - Weight decreased [None]
  - Discomfort [None]
  - Spinal osteoarthritis [None]
  - Waldenstrom^s macroglobulinaemia [None]
  - Myopathy [None]
